FAERS Safety Report 17807198 (Version 2)
Quarter: 2020Q2

REPORT INFORMATION
  Report Type: Report from Study
  Country: US (occurrence: US)
  Receive Date: 20200520
  Receipt Date: 20200618
  Transmission Date: 20200714
  Serious: Yes (Other)
  Sender: FDA-Public Use
  Company Number: US-ASTRAZENECA-2020SE59551

PATIENT
  Age: 19718 Day
  Sex: Female
  Weight: 57.2 kg

DRUGS (4)
  1. TAGRISSO [Suspect]
     Active Substance: OSIMERTINIB
     Indication: LUNG CARCINOMA CELL TYPE UNSPECIFIED STAGE IV
     Route: 048
     Dates: start: 20191004
  2. TAGRISSO [Suspect]
     Active Substance: OSIMERTINIB
     Indication: LUNG CARCINOMA CELL TYPE UNSPECIFIED STAGE 0
     Route: 048
     Dates: start: 20191004
  3. LOVENOX [Concomitant]
     Active Substance: ENOXAPARIN SODIUM
  4. XARELTO [Concomitant]
     Active Substance: RIVAROXABAN

REACTIONS (13)
  - Hyperhidrosis [Unknown]
  - Dyspnoea [Unknown]
  - Haemorrhage [Unknown]
  - Heart rate increased [Unknown]
  - Metrorrhagia [Unknown]
  - Pulmonary embolism [Unknown]
  - Pain in extremity [Unknown]
  - Pulmonary thrombosis [Unknown]
  - Pain in extremity [Unknown]
  - Cough [Unknown]
  - Thrombosis [Unknown]
  - Chest discomfort [Unknown]
  - Platelet count decreased [Unknown]

NARRATIVE: CASE EVENT DATE: 20191221
